FAERS Safety Report 8862812 (Version 1)
Quarter: 2012Q4

REPORT INFORMATION
  Report Type: 
  Country: CA (occurrence: CA)
  Receive Date: 20121026
  Receipt Date: 20121026
  Transmission Date: 20130627
  Serious: Yes (Death, Other)
  Sender: FDA-Public Use
  Company Number: PHHO2005CA13191

PATIENT
  Sex: Male

DRUGS (8)
  1. SANDOSTATIN LAR (PATIENT BASIS) [Suspect]
     Indication: NEUROENDOCRINE TUMOUR
     Dosage: 20 mg, every 4 weeks
     Dates: start: 20021120
  2. SANDOSTATIN LAR (PATIENT BASIS) [Suspect]
     Dosage: 30 mg, every 4 weeks
  3. SANDOSTATIN LAR (PATIENT BASIS) [Suspect]
     Dosage: 30 mg, UNK
     Dates: end: 200610
  4. SANDOSTATIN (OCTREOTIDE ACETATE) [Suspect]
     Indication: NEUROENDOCRINE TUMOUR
     Route: 058
     Dates: start: 200211
  5. HYDROCHLOROTHIAZIDE [Concomitant]
  6. VALIUM [Concomitant]
  7. INTERFERON ALFA [Concomitant]
  8. LOMOTIL [Concomitant]

REACTIONS (16)
  - Death [Fatal]
  - Atrial fibrillation [Unknown]
  - Malignant neoplasm progression [Unknown]
  - Abdominal pain [Unknown]
  - Influenza [Unknown]
  - Cough [Unknown]
  - Ear pain [Unknown]
  - Weight decreased [Unknown]
  - Arthralgia [Unknown]
  - Proctalgia [Unknown]
  - Injection site reaction [Unknown]
  - Heart rate increased [Unknown]
  - Diarrhoea [Not Recovered/Not Resolved]
  - Blood glucose increased [Unknown]
  - Fatigue [Unknown]
  - Injection site pain [Unknown]
